FAERS Safety Report 21966295 (Version 1)
Quarter: 2023Q1

REPORT INFORMATION
  Report Type: Spontaneous
  Country: UZ (occurrence: UZ)
  Receive Date: 20230208
  Receipt Date: 20230208
  Transmission Date: 20230417
  Serious: Yes (Death, Other)
  Sender: FDA-Public Use
  Company Number: UZ-JNJFOC-20230204494

PATIENT
  Age: 42 Year
  Sex: Male
  Weight: 56 kg

DRUGS (6)
  1. BEDAQUILINE [Suspect]
     Active Substance: BEDAQUILINE
     Indication: Pulmonary tuberculosis
     Route: 048
     Dates: start: 20221031, end: 20221113
  2. BEDAQUILINE [Suspect]
     Active Substance: BEDAQUILINE
     Route: 048
     Dates: start: 20221114, end: 20221217
  3. MOXIFLOXACIN [Suspect]
     Active Substance: MOXIFLOXACIN
     Indication: Pulmonary tuberculosis
     Route: 048
     Dates: start: 20221031, end: 20221122
  4. CLOFAZIMINE [Suspect]
     Active Substance: CLOFAZIMINE
     Indication: Pulmonary tuberculosis
     Route: 048
     Dates: start: 20221031, end: 20221217
  5. LINEZOLID [Suspect]
     Active Substance: LINEZOLID
     Indication: Pulmonary tuberculosis
     Route: 048
     Dates: start: 20221031, end: 20221217
  6. DELAMANID [Suspect]
     Active Substance: DELAMANID
     Indication: Pulmonary tuberculosis
     Route: 048
     Dates: start: 20221122, end: 20221217

REACTIONS (22)
  - Renal cancer [Fatal]
  - Multiple organ dysfunction syndrome [Fatal]
  - Adrenalectomy [Fatal]
  - Thrombectomy [Fatal]
  - Ascites [Unknown]
  - Nausea [Unknown]
  - Vomiting [Unknown]
  - Decreased appetite [Unknown]
  - Asthenia [Unknown]
  - Productive cough [Unknown]
  - Dysphagia [Unknown]
  - Confusional state [Unknown]
  - Yellow skin [Unknown]
  - Skin turgor decreased [Unknown]
  - Skin atrophy [Unknown]
  - Fat tissue decreased [Unknown]
  - Hypotonia [Unknown]
  - Wheezing [Unknown]
  - Tongue dry [Unknown]
  - Hepatomegaly [Unknown]
  - Constipation [Unknown]
  - Urine output decreased [Unknown]

NARRATIVE: CASE EVENT DATE: 20221216
